FAERS Safety Report 18853806 (Version 1)
Quarter: 2021Q1

REPORT INFORMATION
  Report Type: Report from Study
  Country: US (occurrence: US)
  Receive Date: 20210205
  Receipt Date: 20210205
  Transmission Date: 20210420
  Serious: Yes (Death, Other)
  Sender: FDA-Public Use
  Company Number: US-PFIZER INC-2021113789

PATIENT
  Age: 77 Year
  Sex: Male

DRUGS (4)
  1. METHOTREXATE SODIUM. [Suspect]
     Active Substance: METHOTREXATE SODIUM
     Indication: CUTANEOUS T-CELL LYMPHOMA STAGE IV
     Dosage: 40 MG/M2, CYCLIC, (DAYS I AND 8 OF EACH CYCLE)
     Route: 042
  2. CYCLOPHOSPHAMIDE. [Suspect]
     Active Substance: CYCLOPHOSPHAMIDE
     Indication: CUTANEOUS T-CELL LYMPHOMA STAGE IV
     Dosage: 600 MG/M2, CYCLIC,(DAYS I AND 8 OF EACH CYCLE)
     Route: 042
  3. PREDNISONE. [Suspect]
     Active Substance: PREDNISONE
     Indication: CUTANEOUS T-CELL LYMPHOMA STAGE IV
     Dosage: 40 MG/M2, CYCLIC, (DAYS I AND 8 OF EACH CYCLE)
     Route: 048
  4. VINCRISTINE SULFATE. [Suspect]
     Active Substance: VINCRISTINE SULFATE
     Indication: CUTANEOUS T-CELL LYMPHOMA STAGE IV
     Dosage: 1.4 MG/M2, CYCLIC, (DAYS I AND 8 OF EACH CYCLE)
     Route: 042

REACTIONS (1)
  - Neutropenic sepsis [Fatal]
